FAERS Safety Report 9140114 (Version 2)
Quarter: 2013Q2

REPORT INFORMATION
  Report Type: Spontaneous
  Country: JP (occurrence: JP)
  Receive Date: 20130305
  Receipt Date: 20130408
  Transmission Date: 20140414
  Serious: Yes (Other)
  Sender: FDA-Public Use
  Company Number: JP-PFIZER INC-2013075235

PATIENT
  Age: 51 Year
  Sex: Female

DRUGS (22)
  1. LYRICA [Suspect]
     Indication: HYPOAESTHESIA
     Dosage: 150 MG/DAY
     Route: 048
     Dates: start: 20130227, end: 20130228
  2. BAYASPIRIN [Concomitant]
     Dosage: 100 MG, 1X/DAY
     Route: 048
  3. ALFAROL [Concomitant]
     Dosage: 0.25 UG, 1X/DAY
     Route: 048
  4. MICARDIS [Concomitant]
     Dosage: 40 MG, 1X/DAY
     Route: 048
  5. ADALAT L [Concomitant]
     Dosage: 10 MG, 1X/DAY
     Route: 048
  6. RIVOTRIL [Concomitant]
     Dosage: 2 MG, UNK
     Route: 048
  7. VASOLAN [Concomitant]
     Dosage: 360 MG, UNK
     Route: 048
  8. CALCIUM CARBONATE [Concomitant]
     Dosage: UNK
     Route: 048
  9. ASPENON [Concomitant]
     Dosage: 80 MG, UNK
     Route: 048
  10. ALOSENN [Concomitant]
     Dosage: UNK
     Route: 048
  11. URSO [Concomitant]
     Dosage: 100 MG, UNK
     Route: 048
  12. METHYCOBAL [Concomitant]
     Dosage: UNK
     Route: 048
  13. TAKEPRON [Concomitant]
     Dosage: UNK
     Route: 048
  14. KINEDAK [Concomitant]
     Dosage: UNK
  15. HUMALOG [Concomitant]
     Dosage: UNK
  16. LEVEMIR [Concomitant]
     Dosage: UNK
  17. CALONAL [Concomitant]
     Dosage: UNK
     Route: 048
  18. TRANSAMIN [Concomitant]
     Dosage: UNK
     Route: 048
  19. LOXONIN [Concomitant]
     Dosage: 60 MG, UNK
     Route: 048
  20. ISOBIDE [Concomitant]
     Dosage: 70 %, UNK
     Route: 048
  21. ADETPHOS [Concomitant]
     Dosage: 10 %, UNK
     Route: 048
  22. CODEINE PHOSPHATE [Concomitant]
     Dosage: UNK

REACTIONS (3)
  - Drug level increased [Recovering/Resolving]
  - Somnolence [Recovered/Resolved]
  - Dizziness [Recovered/Resolved]
